FAERS Safety Report 11654183 (Version 1)
Quarter: 2015Q4

REPORT INFORMATION
  Report Type: Spontaneous
  Country: US (occurrence: US)
  Receive Date: 20151023
  Receipt Date: 20151023
  Transmission Date: 20160304
  Serious: No
  Sender: FDA-Public Use
  Company Number: DE-ASTRAZENECA-2015SF01381

PATIENT
  Age: 50 Year
  Sex: Female

DRUGS (1)
  1. VIMOVO [Suspect]
     Active Substance: ESOMEPRAZOLE MAGNESIUM\NAPROXEN
     Indication: ARTHRALGIA
     Dosage: 1 DOSAGE FORM TWICE DAILY
     Route: 048
     Dates: end: 20151007

REACTIONS (3)
  - Off label use [Unknown]
  - Product use issue [Unknown]
  - Blister [Unknown]

NARRATIVE: CASE EVENT DATE: 20150916
